FAERS Safety Report 7215304-7 (Version None)
Quarter: 2011Q1

REPORT INFORMATION
  Report Type: 
  Country: None (occurrence: None)
  Receive Date: 20110107
  Receipt Date: 20110103
  Transmission Date: 20110831
  Serious: Yes (Other)
  Sender: FDA-Public Use
  Company Number: DE-PFIZER INC-DE-WYE-H18466210

PATIENT
  Age: 75 Year
  Sex: Male
  Weight: 61 kg

DRUGS (4)
  1. RIFUN [Suspect]
     Indication: ABDOMINAL PAIN UPPER
     Dosage: 40 MG, 1X/DAY
     Dates: start: 20070801, end: 20071001
  2. RIFUN [Suspect]
     Dosage: 20 MG, ALTERNATE DAY
     Dates: start: 20100801
  3. PANTOZOL [Suspect]
     Indication: GASTROINTESTINAL DISORDER
     Dosage: UNK
     Dates: start: 20060101, end: 20070101
  4. RIFUN [Suspect]
     Dosage: 20.0 MG, 1X/DAY
     Dates: start: 20071101, end: 20100701

REACTIONS (9)
  - DIZZINESS [None]
  - HEART RATE INCREASED [None]
  - VISION BLURRED [None]
  - TONGUE DRY [None]
  - MUCOUS MEMBRANE DISORDER [None]
  - URTICARIA [None]
  - RASH [None]
  - ARTHROPATHY [None]
  - MUSCULOSKELETAL DISCOMFORT [None]
